FAERS Safety Report 7609601-0 (Version None)
Quarter: 2011Q3

REPORT INFORMATION
  Report Type: 
  Country: None (occurrence: None)
  Receive Date: 20110714
  Receipt Date: 20110712
  Transmission Date: 20111222
  Serious: Yes (Other)
  Sender: FDA-Public Use
  Company Number: US-BAYER-2011-060455

PATIENT
  Age: 85 Year
  Sex: Male
  Weight: 83.9 kg

DRUGS (4)
  1. PREVACID [Concomitant]
  2. ULTRAVIST 150 [Suspect]
     Indication: ANGIOGRAM
     Dosage: 100 ML, ONCE
     Route: 042
     Dates: start: 20110711, end: 20110711
  3. ASPIRIN [Concomitant]
     Dosage: 81 MG, UNK
  4. ZOCOR [Concomitant]

REACTIONS (2)
  - SNEEZING [None]
  - URTICARIA [None]
